FAERS Safety Report 4774432-6 (Version None)
Quarter: 2005Q3

REPORT INFORMATION
  Report Type: 
  Country: None (occurrence: None)
  Receive Date: 20050921
  Receipt Date: 20050912
  Transmission Date: 20060218
  Serious: Yes (Hospitalization)
  Sender: FDA-Public Use
  Company Number: PHRM2005FR02431

PATIENT
  Age: 78 Year
  Sex: Female

DRUGS (9)
  1. COTAREG [Suspect]
     Dosage: 1 DF, QD
     Route: 048
     Dates: start: 20030401, end: 20050417
  2. TANAKAN [Concomitant]
     Route: 048
  3. TENORDATE [Concomitant]
     Dosage: 1 DF, QD
     Route: 048
  4. HYPERIUM [Concomitant]
     Dosage: 1 MG, QD
     Route: 048
  5. DOLIPRANE [Concomitant]
     Dosage: 1 G, PRN
     Route: 048
  6. ESBERIVEN FORTE [Concomitant]
     Dosage: 2 DF, QD
     Route: 048
  7. LASILIX [Suspect]
     Dosage: 40 MG, BID
     Route: 048
     Dates: start: 20050408, end: 20050417
  8. IBUPROFEN [Concomitant]
     Dosage: 400 MG, TID
     Route: 048
     Dates: start: 20050411
  9. KETOPROFEN [Concomitant]
     Dosage: UNK, UNK

REACTIONS (12)
  - ALANINE AMINOTRANSFERASE INCREASED [None]
  - ASPARTATE AMINOTRANSFERASE INCREASED [None]
  - ASTHENIA [None]
  - BRADYPHRENIA [None]
  - CYTOLYTIC HEPATITIS [None]
  - DIFFICULTY IN WALKING [None]
  - DISORIENTATION [None]
  - DIZZINESS [None]
  - DYSSTASIA [None]
  - HYPOCHLORAEMIA [None]
  - HYPOKALAEMIA [None]
  - HYPONATRAEMIA [None]
